FAERS Safety Report 21541868 (Version 1)
Quarter: 2022Q4

REPORT INFORMATION
  Report Type: Spontaneous
  Country: CA (occurrence: CA)
  Receive Date: 20221102
  Receipt Date: 20221102
  Transmission Date: 20230112
  Serious: Yes (Life-Threatening, Other)
  Sender: FDA-Public Use
  Company Number: CA-BAXTER-2022BAX023101

PATIENT
  Age: 81 Year
  Sex: Female

DRUGS (1)
  1. CEFTRIAXONE [Suspect]
     Active Substance: CEFTRIAXONE
     Dosage: DOSE AND FREQUENCY NOT REPORTED (DOSAGE FORM - POWDER FOR SOLUTION, INTRAMUSCULAR)
     Route: 058

REACTIONS (2)
  - Respiratory failure [Unknown]
  - Anaphylactic shock [Unknown]
